FAERS Safety Report 5096863-X (Version None)
Quarter: 2006Q3

REPORT INFORMATION
  Report Type: 
  Country: None (occurrence: None)
  Receive Date: 20060901
  Receipt Date: 20060901
  Transmission Date: 20061208
  Serious: Yes (Hospitalization)
  Sender: FDA-Public Use
  Company Number: None

PATIENT
  Age: 10 Year
  Sex: Male
  Weight: 53 kg

DRUGS (6)
  1. CYTARABINE [Suspect]
     Dosage: 70 MG
  2. DAUNORUBICIN HCL [Suspect]
     Dosage: 122.5 MGSEE IMAGE
  3. DEXAMETHASONE TAB [Suspect]
     Dosage: 278 MG SEE IMAGE
  4. METHOTREXATE [Suspect]
     Dosage: 15 MG  SEE IMAGE
  5. PEG-L-ASPARAGINASE (K-H) [Suspect]
     Dosage: 3600 IU
  6. VINCRISTINE SULFATE [Suspect]
     Dosage: 8 MG

REACTIONS (23)
  - BLOOD PRESSURE IMMEASURABLE [None]
  - CHOLECYSTITIS [None]
  - COLITIS [None]
  - CONVULSION [None]
  - DEPRESSED LEVEL OF CONSCIOUSNESS [None]
  - DISSEMINATED INTRAVASCULAR COAGULATION [None]
  - ENCEPHALOPATHY [None]
  - FUNGAL INFECTION [None]
  - GENERAL PHYSICAL HEALTH DETERIORATION [None]
  - HAEMODIALYSIS [None]
  - HAEMODYNAMIC INSTABILITY [None]
  - HYPOTENSION [None]
  - LACTIC ACIDOSIS [None]
  - LUNG CONSOLIDATION [None]
  - MULTI-ORGAN FAILURE [None]
  - PANCYTOPENIA [None]
  - PLEURAL EFFUSION [None]
  - RENAL FAILURE [None]
  - RESPIRATORY FAILURE [None]
  - SINUSITIS [None]
  - SMALL INTESTINAL OBSTRUCTION [None]
  - STAPHYLOCOCCAL BACTERAEMIA [None]
  - THERAPY NON-RESPONDER [None]
